FAERS Safety Report 12974979 (Version 2)
Quarter: 2016Q4

REPORT INFORMATION
  Report Type: Spontaneous
  Country: US (occurrence: US)
  Receive Date: 20161125
  Receipt Date: 20161130
  Transmission Date: 20170207
  Serious: Yes (Other)
  Sender: FDA-Public Use
  Company Number: US-PFIZER INC-2016537517

PATIENT
  Age: 43 Year
  Sex: Female
  Weight: 61 kg

DRUGS (13)
  1. CIPRO [Concomitant]
     Active Substance: CIPROFLOXACIN HYDROCHLORIDE
     Dosage: 500 MG, 2X/DAY
  2. PYRIDIUM [Concomitant]
     Active Substance: PHENAZOPYRIDINE
     Indication: BLADDER SPASM
     Dosage: 200 MG TABLETS, 4-6 TABLETS A DAY
  3. MIDRIN [Concomitant]
     Active Substance: ACETAMINOPHEN\DICHLORALPHENAZONE\ISOMETHEPTENE
     Indication: MIGRAINE
     Dosage: UNK, (TAKING 8 EVERY SINGLE DAY)
  4. OPANA [Concomitant]
     Active Substance: OXYMORPHONE HYDROCHLORIDE
     Dosage: UNK
  5. PYRIDIUM [Concomitant]
     Active Substance: PHENAZOPYRIDINE
     Indication: BLADDER PAIN
  6. NEXIUM 24HR [Suspect]
     Active Substance: ESOMEPRAZOLE MAGNESIUM
     Dosage: UNK, 1X/DAY
     Route: 048
  7. OXYCODONE [Concomitant]
     Active Substance: OXYCODONE
     Indication: PAIN
     Dosage: UNK
  8. OMEPRAZOLE. [Suspect]
     Active Substance: OMEPRAZOLE
     Dosage: UNK
  9. NEXIUM 24HR [Suspect]
     Active Substance: ESOMEPRAZOLE MAGNESIUM
     Indication: GASTROOESOPHAGEAL REFLUX DISEASE
     Dosage: 22.3 MG, DAILY
     Dates: start: 201312, end: 201504
  10. PROTONIX [Suspect]
     Active Substance: PANTOPRAZOLE SODIUM
     Dosage: 40 MG, UNK
  11. AMOXICILLIN. [Concomitant]
     Active Substance: AMOXICILLIN
     Dosage: 500 MG, 3X/DAY
  12. BACTRIM DS [Concomitant]
     Active Substance: SULFAMETHOXAZOLE\TRIMETHOPRIM
     Dosage: 800 MG, 2X/DAY
  13. BACLOFEN. [Concomitant]
     Active Substance: BACLOFEN
     Indication: MUSCLE SPASMS

REACTIONS (9)
  - Micturition urgency [Unknown]
  - Headache [Recovered/Resolved]
  - Pollakiuria [Unknown]
  - Haematuria [Recovered/Resolved]
  - Intentional product misuse [Recovered/Resolved]
  - Dysuria [Recovered/Resolved]
  - Nephrolithiasis [Unknown]
  - Urinary tract infection [Recovered/Resolved]
  - Emotional distress [Unknown]

NARRATIVE: CASE EVENT DATE: 201312
